FAERS Safety Report 9384857 (Version 1)
Quarter: 2013Q3

REPORT INFORMATION
  Report Type: Spontaneous
  Country: US (occurrence: US)
  Receive Date: 20130705
  Receipt Date: 20130705
  Transmission Date: 20140515
  Serious: No
  Sender: FDA-Public Use
  Company Number: US-PFIZER INC-2013194710

PATIENT
  Age: 70 Year
  Sex: Female

DRUGS (5)
  1. BEXTRA [Suspect]
     Dosage: UNK
  2. DESERYL [Suspect]
     Dosage: UNK
  3. BACTRIM [Suspect]
     Dosage: UNK
  4. DILAUDID [Suspect]
     Dosage: UNK
  5. HYDROCODONE W/ACETAMINOPHEN [Suspect]
     Dosage: UNK

REACTIONS (1)
  - Hypersensitivity [Unknown]
